FAERS Safety Report 7888000-0 (Version None)
Quarter: 2011Q4

REPORT INFORMATION
  Report Type: 
  Country: None (occurrence: None)
  Receive Date: 20111103
  Receipt Date: 20111027
  Transmission Date: 20120403
  Serious: Yes (Other)
  Sender: FDA-Public Use
  Company Number: US-PURDUE-USA-2011-0073563

PATIENT
  Age: 79 Year
  Sex: Female
  Weight: 118 kg

DRUGS (3)
  1. COLACE CAPSULES 50 MG [Suspect]
     Indication: CONSTIPATION
     Dosage: 50 MG, DAILY
     Route: 048
     Dates: start: 20101001
  2. HYDROCODONE BITARTRATE [Suspect]
     Indication: PRODUCT USED FOR UNKNOWN INDICATION
     Dosage: UNK, SEE TEXT
  3. MILK OF MAGNESIA TAB [Suspect]
     Indication: PRODUCT USED FOR UNKNOWN INDICATION

REACTIONS (5)
  - FAECES DISCOLOURED [None]
  - FLATULENCE [None]
  - SURGERY [None]
  - ABDOMINAL PAIN UPPER [None]
  - LOWER RESPIRATORY TRACT INFECTION [None]
